FAERS Safety Report 11254082 (Version 1)
Quarter: 2015Q3

REPORT INFORMATION
  Report Type: Report from Study
  Country: US (occurrence: US)
  Receive Date: 20150709
  Receipt Date: 20150709
  Transmission Date: 20151125
  Serious: Yes (Other)
  Sender: FDA-Public Use
  Company Number: US-PFIZER INC-2015221902

PATIENT

DRUGS (2)
  1. DOXORUBICIN HCL [Suspect]
     Active Substance: DOXORUBICIN HYDROCHLORIDE
     Indication: SOFT TISSUE SARCOMA
     Dosage: 75 MG/M2, CYCLIC (OVER 48 H ON DAY 1 OF A 21 DAY CYCLE)
  2. CIXUTUMUMAB [Suspect]
     Active Substance: CIXUTUMUMAB
     Indication: SOFT TISSUE SARCOMA
     Dosage: 6 MG/KG, CYCLIC
     Route: 042

REACTIONS (1)
  - Hyperglycaemia [Recovered/Resolved]
